FAERS Safety Report 12572029 (Version 1)
Quarter: 2016Q3

REPORT INFORMATION
  Report Type: Spontaneous
  Country: US (occurrence: US)
  Receive Date: 20160719
  Receipt Date: 20160719
  Transmission Date: 20161109
  Serious: No
  Sender: FDA-Public Use
  Company Number: US-ASTRAZENECA-2016SE75003

PATIENT
  Age: 834 Month
  Sex: Female
  Weight: 67.1 kg

DRUGS (3)
  1. RHINOCORT AQUA [Suspect]
     Active Substance: BUDESONIDE
     Indication: VASOMOTOR RHINITIS
     Dosage: 32 MG , DAILY
     Route: 045
     Dates: start: 201606
  2. RHINOCORT AQUA [Suspect]
     Active Substance: BUDESONIDE
     Indication: VASOMOTOR RHINITIS
     Dosage: DAILY
     Route: 045
     Dates: start: 1997, end: 201512
  3. RHINOCORT AQUA [Suspect]
     Active Substance: BUDESONIDE
     Indication: VASOMOTOR RHINITIS
     Dosage: 100 MG , DAILY
     Route: 045
     Dates: start: 201512, end: 201606

REACTIONS (1)
  - Sinusitis [Unknown]

NARRATIVE: CASE EVENT DATE: 201606
